FAERS Safety Report 5179711-9 (Version None)
Quarter: 2006Q4

REPORT INFORMATION
  Report Type: 
  Country: None (occurrence: None)
  Receive Date: 20061212
  Receipt Date: 20061205
  Transmission Date: 20070319
  Serious: Yes (Disabling)
  Sender: FDA-Public Use
  Company Number: APP200600311

PATIENT
  Age: 21 Year
  Sex: Male
  Weight: 77 kg

DRUGS (3)
  1. CHORIONIC GONADOTROPIN [Suspect]
     Indication: HYPOGONADISM
     Dosage: (5000 USP UNITS, 2 IN 1 WK), INJECTION
     Dates: start: 20040612, end: 20060501
  2. FERTINORM P (MENOTROPHIN) [Suspect]
     Indication: HYPOGONADISM
     Dosage: (75 IU, 2 IN 1 WK), INFECTION
     Dates: start: 20040612, end: 20060501
  3. DESMOPRESSIN ACETATE [Suspect]
     Indication: DIABETES INSIPIDUS
     Dosage: 4 PUFFS (2 PUFFS, 2 IN 1 D), NASAL
     Route: 045
     Dates: start: 19930710

REACTIONS (3)
  - OPTIC ATROPHY [None]
  - VISUAL ACUITY REDUCED [None]
  - VISUAL FIELD DEFECT [None]
